FAERS Safety Report 17429172 (Version 2)
Quarter: 2020Q1

REPORT INFORMATION
  Report Type: Report from Study
  Country: BE (occurrence: BE)
  Receive Date: 20200218
  Receipt Date: 20200224
  Transmission Date: 20200409
  Serious: Yes (Other)
  Sender: FDA-Public Use
  Company Number: BE-BAYER-2019-224973

PATIENT
  Sex: Male

DRUGS (15)
  1. TRIBVIT [Concomitant]
     Active Substance: CYANOCOBALAMIN\FOLIC ACID\PYRIDOXINE HYDROCHLORIDE
     Dosage: 1 TAB/D
  2. PANTOMED [DEXPANTHENOL] [Concomitant]
     Dosage: 40 MG/D
  3. NEXAVAR [Suspect]
     Active Substance: SORAFENIB
     Indication: HEPATOCELLULAR CARCINOMA
     Dosage: 400 MG DAILY
     Dates: start: 20191219, end: 20200108
  4. GLUCOPHAGE [Concomitant]
     Active Substance: METFORMIN HYDROCHLORIDE
     Indication: DIABETES MELLITUS
     Dosage: 850 MG 2X/D
  5. BENERVA [Concomitant]
     Active Substance: THIAMINE HYDROCHLORIDE
     Dosage: 300 MG/D
  6. NEXAVAR [Suspect]
     Active Substance: SORAFENIB
     Indication: HEPATOCELLULAR CARCINOMA
     Dosage: 800 MG, QD
     Dates: start: 20200116, end: 20200212
  7. INSULIN [Concomitant]
     Active Substance: INSULIN NOS
     Indication: DIABETES MELLITUS
     Dosage: UNK
  8. TRIPLIXAM [Concomitant]
     Active Substance: AMLODIPINE BESYLATE\INDAPAMIDE\PERINDOPRIL ARGININE
     Dosage: 1/D
  9. CERULYX [Concomitant]
     Indication: CERUMEN REMOVAL
     Dosage: UNK
     Dates: start: 202001
  10. NEXAVAR [Suspect]
     Active Substance: SORAFENIB
     Indication: HEPATOCELLULAR CARCINOMA
     Dosage: 400 MG DAILY
     Dates: start: 20191205, end: 20191210
  11. SIMVASTATIN. [Concomitant]
     Active Substance: SIMVASTATIN
     Dosage: 40 MG/D
  12. COLCHICINE. [Concomitant]
     Active Substance: COLCHICINE
     Dosage: 0.5 MG 2X/D
  13. NOBITEN [NEBIVOLOL] [Concomitant]
     Dosage: 2.5 MG/D
  14. LIPANTHYLNANO [Concomitant]
     Active Substance: FENOFIBRATE
     Dosage: 145 MG/D
  15. XARELTO [Concomitant]
     Active Substance: RIVAROXABAN
     Dosage: 1/D

REACTIONS (14)
  - Diarrhoea [Recovered/Resolved]
  - Dry mouth [Recovering/Resolving]
  - Thrombocytopenia [None]
  - Diabetic foot [Not Recovered/Not Resolved]
  - Ear discomfort [Recovered/Resolved]
  - Fatigue [Not Recovered/Not Resolved]
  - Off label use [None]
  - Dysphonia [Not Recovered/Not Resolved]
  - Palmar-plantar erythrodysaesthesia syndrome [Recovering/Resolving]
  - Weight decreased [Recovering/Resolving]
  - Platelet count decreased [Not Recovered/Not Resolved]
  - Change of bowel habit [Recovering/Resolving]
  - Decreased appetite [Recovering/Resolving]
  - Neutropenia [None]

NARRATIVE: CASE EVENT DATE: 201912
